FAERS Safety Report 17921170 (Version 1)
Quarter: 2020Q2

REPORT INFORMATION
  Report Type: Spontaneous
  Country: JP (occurrence: JP)
  Receive Date: 20200622
  Receipt Date: 20200622
  Transmission Date: 20200714
  Serious: Yes (Hospitalization)
  Sender: FDA-Public Use
  Company Number: JP-SUN PHARMACEUTICAL INDUSTRIES LTD-2020R1-250378

PATIENT
  Age: 57 Year
  Sex: Female

DRUGS (6)
  1. GALANTAMINE. [Suspect]
     Active Substance: GALANTAMINE
     Indication: PSYCHIATRIC SYMPTOM
     Dosage: 4 MILLIGRAM, BID
     Route: 065
  2. MEMANTINE. [Suspect]
     Active Substance: MEMANTINE
     Indication: COGNITIVE DISORDER
  3. MEMANTINE. [Suspect]
     Active Substance: MEMANTINE
     Indication: PSYCHIATRIC SYMPTOM
     Dosage: 10 MILLIGRAM, QD
     Route: 065
  4. SUVOREXANT. [Suspect]
     Active Substance: SUVOREXANT
     Indication: COGNITIVE DISORDER
  5. GALANTAMINE. [Suspect]
     Active Substance: GALANTAMINE
     Indication: COGNITIVE DISORDER
  6. SUVOREXANT. [Suspect]
     Active Substance: SUVOREXANT
     Indication: PSYCHIATRIC SYMPTOM
     Dosage: 20 MILLIGRAM, QD
     Route: 065

REACTIONS (1)
  - Pleurothotonus [Recovered/Resolved]
